FAERS Safety Report 9449558 (Version 1)
Quarter: 2013Q3

REPORT INFORMATION
  Report Type: Spontaneous
  Country: US (occurrence: US)
  Receive Date: 20130809
  Receipt Date: 20130809
  Transmission Date: 20140515
  Serious: No
  Sender: FDA-Public Use
  Company Number: US-009507513-1307USA014712

PATIENT
  Age: 22 Year
  Sex: Female
  Weight: 53.61 kg

DRUGS (1)
  1. IMPLANON [Suspect]
     Indication: CONTRACEPTION
     Dosage: 1 ROD
     Route: 059
     Dates: start: 20100827

REACTIONS (3)
  - Medical device complication [Not Recovered/Not Resolved]
  - Medical device complication [Not Recovered/Not Resolved]
  - Product quality issue [Unknown]
